FAERS Safety Report 25294259 (Version 1)
Quarter: 2025Q2

REPORT INFORMATION
  Report Type: Spontaneous
  Country: US (occurrence: US)
  Receive Date: 20250511
  Receipt Date: 20250511
  Transmission Date: 20250717
  Serious: No
  Sender: SANOFI AVENTIS
  Company Number: US-SA-2025SA126059

PATIENT
  Sex: Male
  Weight: 88.64 kg

DRUGS (5)
  1. DUPIXENT [Suspect]
     Active Substance: DUPILUMAB
     Indication: Dermatitis atopic
     Dosage: 300 MG, QOW
     Route: 058
  2. CLOBETASOL PROPIONATE [Concomitant]
     Active Substance: CLOBETASOL PROPIONATE
  3. KETOCONAZOLE [Concomitant]
     Active Substance: KETOCONAZOLE
  4. TACROLIMUS [Concomitant]
     Active Substance: TACROLIMUS
  5. LISINOPRIL [Concomitant]
     Active Substance: LISINOPRIL

REACTIONS (3)
  - Pruritus [Unknown]
  - Skin exfoliation [Unknown]
  - Inappropriate schedule of product administration [Unknown]
